FAERS Safety Report 8202419-X (Version None)
Quarter: 2012Q1

REPORT INFORMATION
  Report Type: 
  Country: None (occurrence: None)
  Receive Date: 20120312
  Receipt Date: 20110829
  Transmission Date: 20120608
  Serious: No
  Sender: FDA-Public Use
  Company Number: US-ABBOTT-11P-163-0849904-00

PATIENT
  Sex: Male
  Weight: 90.8 kg

DRUGS (1)
  1. DEPAKOTE [Suspect]
     Indication: SCHIZOPHRENIA
     Dates: start: 19970101

REACTIONS (1)
  - GRUNTING [None]
